FAERS Safety Report 8762511 (Version 1)
Quarter: 2012Q4

REPORT INFORMATION
  Report Type: 
  Country: US (occurrence: US)
  Receive Date: 20120830
  Receipt Date: 20120830
  Transmission Date: 20130627
  Serious: No
  Sender: FDA-Public Use
  Company Number: US-PFIZER INC-2012208497

PATIENT
  Age: 32 Year
  Sex: Male
  Weight: 108 kg

DRUGS (1)
  1. VIAGRA [Suspect]
     Dosage: 300 mg, UNK
     Route: 048
     Dates: start: 20120823

REACTIONS (4)
  - Incorrect dose administered [Unknown]
  - Penile erythema [Not Recovered/Not Resolved]
  - Penile pain [Not Recovered/Not Resolved]
  - Erection increased [Not Recovered/Not Resolved]
